FAERS Safety Report 10331361 (Version 1)
Quarter: 2014Q3

REPORT INFORMATION
  Report Type: Spontaneous
  Country: DE (occurrence: DE)
  Receive Date: 20140722
  Receipt Date: 20140722
  Transmission Date: 20150326
  Serious: Yes (Other)
  Sender: FDA-Public Use
  Company Number: DE-SA-2014SA096187

PATIENT

DRUGS (1)
  1. FASTURTEC [Suspect]
     Active Substance: RASBURICASE
     Indication: HYPERURICAEMIA
     Route: 065
     Dates: start: 20140716, end: 20140716

REACTIONS (1)
  - Hepatic failure [Not Recovered/Not Resolved]

NARRATIVE: CASE EVENT DATE: 20140716
